FAERS Safety Report 9100621 (Version 3)
Quarter: 2013Q2

REPORT INFORMATION
  Report Type: Spontaneous
  Country: JP (occurrence: JP)
  Receive Date: 20130215
  Receipt Date: 20130401
  Transmission Date: 20140414
  Serious: Yes (Other)
  Sender: FDA-Public Use
  Company Number: JP-JNJFOC-20130203051

PATIENT
  Age: 84 Year
  Sex: Female
  Weight: 48 kg

DRUGS (13)
  1. XARELTO [Suspect]
     Indication: ATRIAL FIBRILLATION
     Route: 048
     Dates: start: 20130123, end: 20130201
  2. XARELTO [Suspect]
     Indication: EMBOLIC STROKE
     Route: 048
     Dates: start: 20130123, end: 20130201
  3. FUNGUARD [Suspect]
     Indication: CANDIDA TEST POSITIVE
     Route: 042
     Dates: start: 20130110, end: 20130202
  4. FUNGUARD [Suspect]
     Indication: INFECTION
     Route: 042
     Dates: start: 20130110, end: 20130202
  5. ANTIFUNGALS [Concomitant]
     Indication: INFECTION
     Route: 041
  6. FUROSEMIDE [Concomitant]
     Route: 050
  7. VASOLAN [Concomitant]
     Route: 050
  8. LANIRAPID [Concomitant]
     Route: 050
  9. TAKEPRON [Concomitant]
     Route: 050
  10. TARGOCID [Concomitant]
     Indication: STAPHYLOCOCCAL INFECTION
     Route: 042
     Dates: start: 20130111, end: 20130129
  11. ROCEPHIN [Concomitant]
     Indication: PNEUMONIA
     Route: 065
     Dates: start: 20130109, end: 20130202
  12. WARFARIN [Concomitant]
     Route: 065
     Dates: start: 20130101
  13. HEPARIN [Concomitant]
     Route: 065

REACTIONS (1)
  - Pancytopenia [Recovered/Resolved]
